FAERS Safety Report 5706951-X (Version None)
Quarter: 2008Q2

REPORT INFORMATION
  Report Type: 
  Country: None (occurrence: None)
  Receive Date: 20080416
  Receipt Date: 20080402
  Transmission Date: 20081010
  Serious: No
  Sender: FDA-Public Use
  Company Number: US-AMGEN-QUU269553

PATIENT
  Sex: Female
  Weight: 62.2 kg

DRUGS (6)
  1. NEULASTA [Suspect]
     Indication: CHEMOTHERAPY
     Route: 058
     Dates: start: 20080229, end: 20080229
  2. ALOXI [Concomitant]
     Dates: start: 20080207
  3. DECADRON [Concomitant]
     Dates: start: 20080207
  4. FLUOROURACIL [Concomitant]
     Dates: start: 20080207
  5. CYTOXAN [Concomitant]
     Dates: start: 20080207
  6. EPIRUBICIN [Concomitant]
     Dates: start: 20080207

REACTIONS (4)
  - ANAPHYLACTIC REACTION [None]
  - DYSPNOEA [None]
  - PRURITUS [None]
  - SWELLING FACE [None]
